FAERS Safety Report 14854650 (Version 1)
Quarter: 2018Q2

REPORT INFORMATION
  Report Type: Spontaneous
  Country: US (occurrence: US)
  Receive Date: 20180507
  Receipt Date: 20180507
  Transmission Date: 20180711
  Serious: Yes (Death, Other)
  Sender: FDA-Public Use
  Company Number: US-PFIZER INC-2018182944

PATIENT
  Age: 69 Year
  Sex: Male

DRUGS (1)
  1. GENOTROPIN [Suspect]
     Active Substance: SOMATROPIN
     Dosage: UNK, WEEKLY(0.7-7DAYS/WK)
     Dates: start: 200909

REACTIONS (2)
  - Renal failure [Fatal]
  - Fluid retention [Fatal]
